FAERS Safety Report 19424972 (Version 3)
Quarter: 2021Q4

REPORT INFORMATION
  Report Type: Spontaneous
  Country: US (occurrence: US)
  Receive Date: 20210616
  Receipt Date: 20211015
  Transmission Date: 20220303
  Serious: No
  Sender: FDA-Public Use
  Company Number: US-SA-SAC20210614000906

PATIENT
  Age: 60 Year
  Sex: Male

DRUGS (1)
  1. AUBAGIO [Suspect]
     Active Substance: TERIFLUNOMIDE
     Indication: Multiple sclerosis
     Dosage: 14 MG, QD
     Route: 048
     Dates: start: 20181108

REACTIONS (6)
  - Limb discomfort [Unknown]
  - Gait disturbance [Not Recovered/Not Resolved]
  - Balance disorder [Unknown]
  - Fatigue [Not Recovered/Not Resolved]
  - Fall [Not Recovered/Not Resolved]
  - Mobility decreased [Not Recovered/Not Resolved]

NARRATIVE: CASE EVENT DATE: 20210901
